FAERS Safety Report 9150710 (Version 2)
Quarter: 2013Q2

REPORT INFORMATION
  Report Type: Spontaneous
  Country: US (occurrence: US)
  Receive Date: 20130308
  Receipt Date: 20130610
  Transmission Date: 20140414
  Serious: No
  Sender: FDA-Public Use
  Company Number: US-ASTELLAS-2013US001319

PATIENT
  Age: 73 Year
  Sex: Male
  Weight: 64 kg

DRUGS (4)
  1. XTANDI [Suspect]
     Indication: PROSTATE CANCER
     Dosage: 120 MG, UID/QD
     Route: 048
     Dates: end: 20130202
  2. XTANDI [Interacting]
     Dosage: 160 MG, UID/QD
     Route: 048
     Dates: start: 20121228
  3. PREDNISONE [Concomitant]
     Indication: PRODUCT USED FOR UNKNOWN INDICATION
     Dosage: 10 MG, UID/QD
     Route: 048
     Dates: start: 20121228, end: 20130128
  4. TERAZOSIN [Concomitant]
     Indication: PROSTATOMEGALY
     Dosage: 10 MG, UID/QD
     Route: 048

REACTIONS (3)
  - Immune system disorder [Unknown]
  - Gastrooesophageal reflux disease [Unknown]
  - Herpes zoster [Recovered/Resolved]
